FAERS Safety Report 24023327 (Version 1)
Quarter: 2024Q2

REPORT INFORMATION
  Report Type: Spontaneous
  Country: JP (occurrence: JP)
  Receive Date: 20240627
  Receipt Date: 20240627
  Transmission Date: 20240716
  Serious: Yes (Other)
  Sender: FDA-Public Use
  Company Number: JP-ABBVIE-5817067

PATIENT
  Age: 75 Year
  Sex: Male
  Weight: 51 kg

DRUGS (17)
  1. SEVOFLURANE [Suspect]
     Active Substance: SEVOFLURANE
     Indication: Maintenance of anaesthesia
     Dosage: 1%
     Route: 065
  2. SEVOFLURANE [Suspect]
     Active Substance: SEVOFLURANE
     Indication: Maintenance of anaesthesia
     Route: 065
  3. SEVOFLURANE [Suspect]
     Active Substance: SEVOFLURANE
     Indication: Maintenance of anaesthesia
     Dosage: 5%
     Route: 065
  4. DEXMEDETOMIDINE HYDROCHLORIDE [Concomitant]
     Active Substance: DEXMEDETOMIDINE HYDROCHLORIDE
     Indication: Maintenance of anaesthesia
     Route: 065
  5. ROCURONIUM BROMIDE [Concomitant]
     Active Substance: ROCURONIUM BROMIDE
     Indication: Maintenance of anaesthesia
     Route: 065
  6. BUPIVACAINE HYDROCHLORIDE [Concomitant]
     Active Substance: BUPIVACAINE HYDROCHLORIDE\BUPIVACAINE HYDROCHLORIDE ANHYDROUS
     Indication: Spinal anaesthesia
     Dosage: 3 ML
     Route: 029
  7. LIDOCAINE [Concomitant]
     Active Substance: LIDOCAINE
     Indication: Epidural test dose
     Dosage: 2 ML
     Route: 008
  8. TRANEXAMIC ACID [Concomitant]
     Active Substance: TRANEXAMIC ACID
     Indication: Haemostasis
     Route: 065
  9. LEVOBUPIVACAINE HYDROCHLORIDE [Suspect]
     Active Substance: LEVOBUPIVACAINE HYDROCHLORIDE
     Indication: Epidural anaesthesia
     Dosage: 10 ML FOLLOWED BY A SUBSEQUENT DOSE OF 5 ML EVERY HOUR (25 ML)
     Route: 008
  10. LEVOBUPIVACAINE HYDROCHLORIDE [Suspect]
     Active Substance: LEVOBUPIVACAINE HYDROCHLORIDE
     Indication: Epidural anaesthesia
     Dosage: 0.167%, CONTINUOUS EP 4 ML/HR (300 ML/HOUR)
     Route: 008
  11. LEVOBUPIVACAINE HYDROCHLORIDE [Suspect]
     Active Substance: LEVOBUPIVACAINE HYDROCHLORIDE
     Indication: Epidural anaesthesia
     Dosage: 0.25% UNKNOWN ( / HOUR)
     Route: 008
  12. REMIFENTANIL [Suspect]
     Active Substance: REMIFENTANIL
     Indication: Induction and maintenance of anaesthesia
     Dosage: 0.3 MILLIGRAM/KG/MIN
     Route: 065
  13. REMIFENTANIL [Suspect]
     Active Substance: REMIFENTANIL
     Indication: Induction and maintenance of anaesthesia
     Route: 065
  14. REMIFENTANIL [Suspect]
     Active Substance: REMIFENTANIL
     Indication: Induction and maintenance of anaesthesia
     Route: 065
  15. REMIFENTANIL [Suspect]
     Active Substance: REMIFENTANIL
     Indication: Induction and maintenance of anaesthesia
     Dosage: UPPER LIMIT: 2 MCG/KG/MIN
     Route: 065
  16. PROPOFOL [Concomitant]
     Active Substance: PROPOFOL
     Indication: Induction of anaesthesia
     Route: 065
  17. DOXAZOSIN MESYLATE [Concomitant]
     Active Substance: DOXAZOSIN MESYLATE
     Indication: Preoperative care
     Dosage: UP-TITRATION TO 16 MG/DAY OVER SEVERAL WEEKS
     Route: 048

REACTIONS (10)
  - Electrocardiogram ST segment depression [Recovering/Resolving]
  - Movement disorder [Recovering/Resolving]
  - Wound complication [Recovering/Resolving]
  - Hypoaesthesia [Recovering/Resolving]
  - Unevaluable event [Recovering/Resolving]
  - Ileus paralytic [Recovering/Resolving]
  - Sensory disturbance [Recovering/Resolving]
  - Hypertension [Recovering/Resolving]
  - Hypotension [Recovering/Resolving]
  - Tachycardia [Recovering/Resolving]
